FAERS Safety Report 15360270 (Version 4)
Quarter: 2025Q2

REPORT INFORMATION
  Report Type: Report from Study
  Country: CA (occurrence: CA)
  Receive Date: 20180907
  Receipt Date: 20250404
  Transmission Date: 20250717
  Serious: Yes (Other)
  Sender: ROCHE
  Company Number: CA-002147023-PHHY2018CA088968

PATIENT
  Age: 59 Year
  Sex: Female

DRUGS (5)
  1. XOLAIR [Suspect]
     Active Substance: OMALIZUMAB
     Indication: Asthma
     Dosage: 300 MG, EVERY 4 WEEKS
     Route: 058
     Dates: start: 20160620
  2. VENTOLIN [Concomitant]
     Active Substance: ALBUTEROL SULFATE
     Indication: Product used for unknown indication
     Dosage: 2 DF, TID
     Route: 065
  3. SYMBICORT [Concomitant]
     Active Substance: BUDESONIDE\FORMOTEROL FUMARATE DIHYDRATE
     Indication: Product used for unknown indication
     Dosage: 2 DF, TID
     Route: 065
  4. SPIRIVA [Concomitant]
     Active Substance: TIOTROPIUM BROMIDE MONOHYDRATE
     Indication: Product used for unknown indication
     Dosage: 1 DF, QD
     Route: 065
  5. SINGULAIR [Concomitant]
     Active Substance: MONTELUKAST SODIUM
     Indication: Product used for unknown indication
     Dosage: 1 DF, QD
     Route: 065

REACTIONS (32)
  - Bundle branch block right [Unknown]
  - Hilar lymphadenopathy [Unknown]
  - Lymphadenopathy mediastinal [Unknown]
  - Lymph node calcification [Unknown]
  - Eosinophilia [Unknown]
  - Eczema [Unknown]
  - Bronchiectasis [Unknown]
  - Angiotensin converting enzyme increased [Unknown]
  - Bronchial secretion retention [Unknown]
  - Atypical mycobacterial infection [Unknown]
  - Bronchopulmonary aspergillosis allergic [Unknown]
  - Insomnia [Not Recovered/Not Resolved]
  - Upper respiratory tract infection [Unknown]
  - Smoke sensitivity [Unknown]
  - Dust allergy [Unknown]
  - Perfume sensitivity [Unknown]
  - Increased bronchial secretion [Unknown]
  - Obstructive airways disorder [Unknown]
  - Allergy to animal [Unknown]
  - Middle insomnia [Unknown]
  - Dyspnoea [Unknown]
  - Asthma [Not Recovered/Not Resolved]
  - Weight decreased [Unknown]
  - Forced expiratory volume decreased [Unknown]
  - Seasonal allergy [Unknown]
  - Wheezing [Not Recovered/Not Resolved]
  - Chest discomfort [Not Recovered/Not Resolved]
  - Discomfort [Unknown]
  - Cough [Not Recovered/Not Resolved]
  - Hypersensitivity [Unknown]
  - Throat clearing [Not Recovered/Not Resolved]
  - Functional residual capacity increased [Unknown]

NARRATIVE: CASE EVENT DATE: 20180701
